FAERS Safety Report 4316246-7 (Version None)
Quarter: 2004Q1

REPORT INFORMATION
  Report Type: 
  Country: None (occurrence: None)
  Receive Date: 20040312
  Receipt Date: 20040303
  Transmission Date: 20041129
  Serious: Yes (Other)
  Sender: FDA-Public Use
  Company Number: AU-ROCHE-360550

PATIENT
  Sex: Female

DRUGS (1)
  1. ROCEPHIN [Suspect]
     Indication: CELLULITIS
     Route: 030

REACTIONS (5)
  - ABDOMINAL PAIN UPPER [None]
  - CANDIDIASIS [None]
  - DIARRHOEA [None]
  - DIARRHOEA HAEMORRHAGIC [None]
  - RECTAL HAEMORRHAGE [None]
